FAERS Safety Report 13080854 (Version 3)
Quarter: 2017Q1

REPORT INFORMATION
  Report Type: Report from Study
  Country: CO (occurrence: CO)
  Receive Date: 20170103
  Receipt Date: 20170223
  Transmission Date: 20170428
  Serious: Yes (Hospitalization, Other)
  Sender: FDA-Public Use
  Company Number: PHHY2016CO180562

PATIENT
  Sex: Female
  Weight: 52 kg

DRUGS (5)
  1. FOLIC ACID. [Concomitant]
     Active Substance: FOLIC ACID
     Indication: PRODUCT USED FOR UNKNOWN INDICATION
     Dosage: UNK
     Route: 065
  2. HYDROXYUREA. [Concomitant]
     Active Substance: HYDROXYUREA
     Indication: PRODUCT USED FOR UNKNOWN INDICATION
     Dosage: UNK
     Route: 065
  3. SALBUTAMOL [Concomitant]
     Active Substance: ALBUTEROL
     Indication: PRODUCT USED FOR UNKNOWN INDICATION
     Dosage: UNK UNK, PRN (SINCE WAS A CHILD)
     Route: 065
  4. EXJADE [Suspect]
     Active Substance: DEFERASIROX
     Indication: SICKLE CELL ANAEMIA
     Dosage: 500 MG, Q12H
     Route: 048
     Dates: start: 20161103, end: 201612
  5. EXJADE [Suspect]
     Active Substance: DEFERASIROX
     Dosage: 500 MG, Q12H
     Route: 048

REACTIONS (9)
  - Ejection fraction decreased [Unknown]
  - Dust allergy [Unknown]
  - Sickle cell anaemia [Recovered/Resolved]
  - Pneumonia [Recovered/Resolved]
  - Haemoglobin decreased [Unknown]
  - Rhinitis [Unknown]
  - Inappropriate schedule of drug administration [Unknown]
  - Pleural effusion [Recovered/Resolved]
  - Hypoxia [Unknown]
